FAERS Safety Report 6737585-6 (Version None)
Quarter: 2010Q2

REPORT INFORMATION
  Report Type: 
  Country: None (occurrence: None)
  Receive Date: 20100524
  Receipt Date: 20100512
  Transmission Date: 20101027
  Serious: Yes (Hospitalization)
  Sender: FDA-Public Use
  Company Number: BR-MEDIMMUNE-MEDI-0011195

PATIENT
  Sex: Male
  Weight: 6.63 kg

DRUGS (5)
  1. SYNAGIS [Suspect]
     Indication: CARDIAC DISORDER
     Route: 030
     Dates: start: 20090723, end: 20090723
  2. CAPTOPRIL [Concomitant]
     Route: 048
  3. DIGOXIN [Concomitant]
     Route: 048
  4. SPIRONOLACTONE [Concomitant]
     Route: 048
     Dates: start: 20100410
  5. PROSAMIDA [Concomitant]
     Route: 048

REACTIONS (5)
  - BRONCHITIS [None]
  - DYSPNOEA [None]
  - PNEUMONIA [None]
  - RHINORRHOEA [None]
  - UPPER AIRWAY OBSTRUCTION [None]
